FAERS Safety Report 18402352 (Version 1)
Quarter: 2020Q4

REPORT INFORMATION
  Report Type: Spontaneous
  Country: NL (occurrence: NL)
  Receive Date: 20201020
  Receipt Date: 20201020
  Transmission Date: 20210114
  Serious: Yes (Hospitalization)
  Sender: FDA-Public Use
  Company Number: NL-TEVA-2020-NL-1838736

PATIENT
  Age: 50 Year
  Sex: Female
  Weight: 122 kg

DRUGS (14)
  1. DOXYCYCLINE TABLET 100MG / BRAND NAME NOT SPECIFIED [Concomitant]
     Dosage: 50 MILLIGRAM DAILY;  0.5 PIECE, THERAPY START DATE AND END DATE: ASKED BUT UNKNOWN
  2. MAGNESIUMHYDROXIDE KAUWTABLET 724MG / BRAND NAME NOT SPECIFIED [Concomitant]
     Indication: CONSTIPATION
     Dosage: 3 DOSAGE FORMS DAILY; IF NECESSARY, 3 TIMES A DAY 1 PIECE, 1 DOSAGE FORM, THERAPY START DATE AND END
  3. PREDNISOLON TABLET 30MG / BRAND NAME NOT SPECIFIED [Concomitant]
     Dosage: 20 MILLIGRAM DAILY; THERAPY END DATE: ASKED BUT UNKNOWN
     Dates: start: 20200622
  4. PREDNISOLON TABLET 30MG / BRAND NAME NOT SPECIFIED [Concomitant]
     Dosage: 7.5 MILLIGRAM DAILY; THERAPY END DATE: ASKED BUT UNKNOWN
     Dates: start: 20200706
  5. PREDNISOLON TABLET 30MG / BRAND NAME NOT SPECIFIED [Concomitant]
     Dosage: 10 MILLIGRAM DAILY; THERAPY END DATE: ASKED BUT UNKNOWN
     Dates: start: 20200629
  6. PREDNISOLON TABLET 30MG / BRAND NAME NOT SPECIFIED [Concomitant]
     Dosage: 60 MILLIGRAM DAILY; THERAPY END DATE: ASKED BUT UNKNOWN
     Dates: start: 20200612
  7. PREDNISOLON TABLET 30MG / BRAND NAME NOT SPECIFIED [Concomitant]
     Dosage: 5 MILLIGRAM DAILY;
     Dates: start: 20200713, end: 20200720
  8. DOXYCYCLINE TABLET 100MG / BRAND NAME NOT SPECIFIED [Concomitant]
     Dosage: THERAPY START DATE AND END DATE: ASKED BUT UNKNOWN
  9. PANTOPRAZOL TABLET MSR 40MG / BRAND NAME NOT SPECIFIED [Concomitant]
     Active Substance: PANTOPRAZOLE
     Dosage: 40 MILLIGRAM DAILY; THERAPY START DATE AND END DATE: ASKED BUT UNKNOWN
  10. PREDNISOLON TABLET 30MG / BRAND NAME NOT SPECIFIED [Concomitant]
     Dosage: 30 MILLIGRAM DAILY; THERAPY END DATE: ASKED BUT UNKNOWN
     Dates: start: 20200615
  11. CALCIUMCARB/COLECALC KAUWTB 1,25G/440IE (500MG CA) / BRAND NAME NOT SP [Concomitant]
     Dosage: 500 MILLIGRAM DAILY; THERAPY START DATE AND END DATE: ASKED BUT UNKNOWN
  12. PACLITAXEL INFUUS / BRAND NAME NOT SPECIFIED [Suspect]
     Active Substance: PACLITAXEL
     Indication: BREAST CANCER
     Dosage: WEEKLY INFUSION, 186 MG = 281 ML, 186 MG
     Route: 041
     Dates: start: 20200428, end: 20200529
  13. KOELZALF / BRAND NAME NOT SPECIFIED [Concomitant]
     Indication: PRURITUS
     Dosage: BY APPOINTMENT, N.N. WHEN ITCHING, 1 DOSAGE FORM, THERAPY START DATE AND END DATE: ASKED BUT UNKNOWN
  14. TAMOXIFEN TABLET 20MG / BRAND NAME NOT SPECIFIED [Concomitant]
     Dosage: 20 MILLIGRAM DAILY; THERAPY START DATE AND END DATE: ASKED BUT UNKNOWN

REACTIONS (1)
  - Pneumonitis [Recovering/Resolving]

NARRATIVE: CASE EVENT DATE: 20200602
